FAERS Safety Report 11464788 (Version 1)
Quarter: 2015Q3

REPORT INFORMATION
  Report Type: Spontaneous
  Country: US (occurrence: US)
  Receive Date: 20150906
  Receipt Date: 20150906
  Transmission Date: 20151125
  Serious: No
  Sender: FDA-Public Use
  Company Number: US-ASTRAZENECA-2015SE82591

PATIENT
  Sex: Male
  Weight: 113.4 kg

DRUGS (2)
  1. METFORMIN [Concomitant]
     Active Substance: METFORMIN HYDROCHLORIDE
     Indication: DIABETES MELLITUS
  2. BYETTA [Suspect]
     Active Substance: EXENATIDE
     Indication: DIABETES MELLITUS
     Route: 065

REACTIONS (3)
  - Blood glucose increased [Unknown]
  - Feeling abnormal [Unknown]
  - Drug dose omission [Unknown]
